FAERS Safety Report 7452050-9 (Version None)
Quarter: 2011Q2

REPORT INFORMATION
  Report Type: 
  Country: None (occurrence: None)
  Receive Date: 20110502
  Receipt Date: 20110418
  Transmission Date: 20111010
  Serious: Yes (Other)
  Sender: FDA-Public Use
  Company Number: US-ACTELION-A-US2011-47702

PATIENT

DRUGS (5)
  1. LASIX [Concomitant]
  2. TADALAFIL [Concomitant]
  3. ACIPHEX [Concomitant]
  4. TRACLEER [Suspect]
     Indication: PULMONARY ARTERIAL HYPERTENSION
     Dosage: 125 MG, BID
     Route: 048
     Dates: start: 20070427
  5. WARFARIN [Concomitant]

REACTIONS (2)
  - PREGNANCY TEST POSITIVE [None]
  - ABORTION SPONTANEOUS [None]
